FAERS Safety Report 9441820 (Version 1)
Quarter: 2013Q3

REPORT INFORMATION
  Report Type: Spontaneous
  Country: US (occurrence: US)
  Receive Date: 20130806
  Receipt Date: 20130806
  Transmission Date: 20140515
  Serious: No
  Sender: FDA-Public Use
  Company Number: US-PFIZER INC-2013225541

PATIENT
  Sex: Male

DRUGS (3)
  1. CELEBREX [Suspect]
     Dosage: 200 MG, 2X/DAY
  2. VOLTAREN [Suspect]
     Dosage: UNK
     Route: 061
  3. VOLTAREN [Suspect]
     Dosage: UNK
     Route: 061
     Dates: start: 20130627

REACTIONS (4)
  - Renal function test abnormal [Unknown]
  - Drug ineffective [Unknown]
  - Musculoskeletal stiffness [Unknown]
  - Discomfort [Unknown]
